FAERS Safety Report 14026416 (Version 2)
Quarter: 2017Q4

REPORT INFORMATION
  Report Type: Report from Study
  Country: US (occurrence: US)
  Receive Date: 20170929
  Receipt Date: 20171010
  Transmission Date: 20180321
  Serious: Yes (Death, Hospitalization)
  Sender: FDA-Public Use
  Company Number: US-ACTELION-A-NJ2017-160199

PATIENT
  Age: 54 Year
  Sex: Male

DRUGS (1)
  1. UPTRAVI [Suspect]
     Active Substance: SELEXIPAG
     Indication: PULMONARY ARTERIAL HYPERTENSION
     Dosage: 200 MCG, BID
     Route: 048
     Dates: start: 20170920

REACTIONS (6)
  - Renal disorder [Unknown]
  - Cardiac failure [Fatal]
  - Pain in extremity [Unknown]
  - Pulmonary arterial hypertension [Fatal]
  - Disease progression [Fatal]
  - Liver transplant [Unknown]
